FAERS Safety Report 18968154 (Version 1)
Quarter: 2021Q1

REPORT INFORMATION
  Report Type: Spontaneous
  Country: US (occurrence: US)
  Receive Date: 20210304
  Receipt Date: 20210304
  Transmission Date: 20210420
  Serious: No
  Sender: FDA-Public Use
  Company Number: US-JNJFOC-20210302171

PATIENT

DRUGS (1)
  1. IMODIUM A?D [Suspect]
     Active Substance: LOPERAMIDE HYDROCHLORIDE
     Indication: DIARRHOEA
     Dosage: 2 FIRST WITH A GLASS OF WATER THEN ANOTHER ONE WITH A GLASS OF WATER AND THEN ANOTHER ONE
     Route: 048

REACTIONS (2)
  - Therapeutic response delayed [Unknown]
  - Incorrect dose administered [Unknown]
